FAERS Safety Report 24383584 (Version 1)
Quarter: 2024Q3

REPORT INFORMATION
  Report Type: Spontaneous
  Country: US (occurrence: None)
  Receive Date: 20240930
  Receipt Date: 20240930
  Transmission Date: 20241017
  Serious: Yes (Hospitalization, Disabling, Other)
  Sender: Public
  Company Number: None

PATIENT
  Age: 79 Year
  Sex: Female
  Weight: 62.1 kg

DRUGS (2)
  1. VIBRAMYCIN HYCLATE [Suspect]
     Active Substance: DOXYCYCLINE HYCLATE
     Indication: Viral infection
     Dosage: OTHER QUANTITY : 15 CAPSULE(S);?FREQUENCY : EVERY 12 HOURS;?
     Route: 048
     Dates: start: 20240906, end: 20240909
  2. VARIOUS HEAR MEDS [Concomitant]

REACTIONS (4)
  - Feeding disorder [None]
  - Fluid intake reduced [None]
  - Acute kidney injury [None]
  - Impaired work ability [None]

NARRATIVE: CASE EVENT DATE: 20240910
